FAERS Safety Report 8764342 (Version 1)
Quarter: 2012Q4

REPORT INFORMATION
  Report Type: 
  Country: US (occurrence: US)
  Receive Date: 20120831
  Receipt Date: 20120831
  Transmission Date: 20130627
  Serious: Yes (Hospitalization)
  Sender: FDA-Public Use
  Company Number: PHEH2010US003938

PATIENT
  Sex: Female

DRUGS (6)
  1. ZOMETA [Suspect]
  2. VINORELBINE [Concomitant]
  3. PLAQUENIL [Concomitant]
  4. RELAFEN [Concomitant]
  5. VICODIN [Concomitant]
  6. NAVELBINE [Concomitant]

REACTIONS (8)
  - Osteomyelitis [Unknown]
  - Osteonecrosis of jaw [Unknown]
  - Joint swelling [Unknown]
  - Feeling abnormal [Unknown]
  - Dehydration [Unknown]
  - Pain [Unknown]
  - Anaemia [Unknown]
  - Constipation [Unknown]
